FAERS Safety Report 9685102 (Version 1)
Quarter: 2013Q4

REPORT INFORMATION
  Report Type: Spontaneous
  Country: FR (occurrence: FR)
  Receive Date: 20131113
  Receipt Date: 20131113
  Transmission Date: 20140711
  Serious: Yes (Hospitalization)
  Sender: FDA-Public Use
  Company Number: FR-JNJFOC-20131106262

PATIENT
  Age: 81 Year
  Sex: Female

DRUGS (19)
  1. XARELTO [Suspect]
     Indication: ATRIAL FIBRILLATION
     Route: 048
     Dates: end: 20130924
  2. XARELTO [Suspect]
     Indication: CEREBROVASCULAR ACCIDENT PROPHYLAXIS
     Route: 048
     Dates: end: 20130924
  3. LOVENOX [Suspect]
     Indication: ATRIAL FIBRILLATION
     Route: 058
     Dates: start: 20130930
  4. PRADAXA [Suspect]
     Indication: ATRIAL FIBRILLATION
     Route: 048
     Dates: start: 20130925, end: 20130925
  5. HYDROCORTISONE [Concomitant]
     Dosage: 1-1-0
     Route: 065
  6. NEBIVOLOL [Concomitant]
     Route: 065
  7. DAFALGAN [Concomitant]
     Route: 065
  8. LAMALINE [Concomitant]
     Route: 065
  9. UVEDOSE [Concomitant]
     Route: 065
  10. CHONDROSULF [Concomitant]
     Route: 065
  11. MIANSERIN [Concomitant]
     Dosage: 10 MG, 0-0-1/2
     Route: 065
  12. SERESTA [Concomitant]
     Dosage: 1-0-1
     Route: 065
  13. SERESTA [Concomitant]
     Dosage: 0-0-0-1
     Route: 065
  14. EUPANTOL [Concomitant]
     Dosage: 0-0-1
     Route: 065
  15. SPIRONOLACTONE [Concomitant]
     Route: 065
  16. DIGOXIN [Concomitant]
     Route: 065
  17. RILMENIDINE [Concomitant]
     Route: 065
  18. FENOFIBRATE [Concomitant]
     Route: 065
  19. FUROSEMIDE [Concomitant]
     Route: 065

REACTIONS (2)
  - Skin necrosis [Recovering/Resolving]
  - Haematoma [Recovering/Resolving]
